FAERS Safety Report 6221818-9 (Version None)
Quarter: 2009Q2

REPORT INFORMATION
  Report Type: 
  Country: None (occurrence: None)
  Receive Date: 20090608
  Receipt Date: 20090526
  Transmission Date: 20091009
  Serious: Yes (Death)
  Sender: FDA-Public Use
  Company Number: OXER20090004

PATIENT
  Age: 41 Year
  Sex: Male

DRUGS (4)
  1. OXYCODONE HCL [Suspect]
     Dosage: ORAL
     Route: 048
     Dates: end: 20070101
  2. ALPRAZOLAM [Suspect]
     Dosage: ORAL
     Route: 048
     Dates: end: 20070101
  3. THIORIDAZINE HCL [Suspect]
     Dosage: ORAL
     Route: 048
     Dates: end: 20070101
  4. LITHIUM CARBONATE [Suspect]
     Dosage: ORAL
     Route: 048
     Dates: end: 20070101

REACTIONS (4)
  - CARDIOMEGALY [None]
  - DRUG ABUSE [None]
  - EMPHYSEMA [None]
  - PULMONARY CONGESTION [None]
